FAERS Safety Report 7154306-6 (Version None)
Quarter: 2010Q4

REPORT INFORMATION
  Report Type: 
  Country: None (occurrence: None)
  Receive Date: 20101213
  Receipt Date: 20101130
  Transmission Date: 20110411
  Serious: Yes (Hospitalization)
  Sender: FDA-Public Use
  Company Number: US-WATSON-2010-15758

PATIENT
  Age: 40 Year
  Sex: Female

DRUGS (1)
  1. LAMOTRIGINE [Suspect]
     Indication: INTENTIONAL OVERDOSE
     Dosage: 6000 MG, SINGLE (30, 200MG TABLETS)
     Route: 048

REACTIONS (5)
  - AGITATION [None]
  - CATATONIA [None]
  - DELIRIUM [None]
  - ENCEPHALOPATHY [None]
  - MUTISM [None]
